FAERS Safety Report 9817704 (Version 2)
Quarter: 2015Q4

REPORT INFORMATION
  Report Type: Report from Study
  Country: US (occurrence: US)
  Receive Date: 20140115
  Receipt Date: 20151007
  Transmission Date: 20160305
  Serious: Yes (Hospitalization)
  Sender: FDA-Public Use
  Company Number: US-ROCHE-1329943

PATIENT
  Sex: Female

DRUGS (10)
  1. SINGULAIR [Concomitant]
     Active Substance: MONTELUKAST SODIUM
     Dosage: 1 TABLET ORAL PER DAY
     Route: 048
  2. NAPROXEN. [Suspect]
     Active Substance: NAPROXEN
     Indication: MENSTRUAL DISORDER
     Dosage: 1 TABLET BY ORAL ROUTE TWICE DAILY WITH FOOD
     Route: 048
  3. FLONASE (UNITED STATES) [Concomitant]
     Dosage: 2 SPRAYS BY NASAL ROUTE 1  PER DAY?50 MCG/ACTUATION SPRAY
     Route: 045
  4. ADVAIR DISKUS [Concomitant]
     Active Substance: FLUTICASONE PROPIONATE\SALMETEROL XINAFOATE
     Dosage: 1 PUFF TWO TIMES/DAY IN THE MORNING AND EVENING?DOSE : 500/50 MCG
     Route: 065
  5. CODEINE/GUAIFENESIN [Concomitant]
     Active Substance: CODEINE\GUAIFENESIN
     Dosage: EVERY 4 HOURS?10-100MG/5ML SYRUP
     Route: 048
  6. ALBUTEROL. [Concomitant]
     Active Substance: ALBUTEROL
     Dosage: INHALE 3ML BY NEBULIZATION 4 X DAY PRN?2.5MG/3ML SOLUTION FOR NEBULIZATION
     Route: 065
  7. XOLAIR [Suspect]
     Active Substance: OMALIZUMAB
     Indication: ASTHMA
     Route: 058
     Dates: start: 2008
  8. PROAIR HFA [Concomitant]
     Active Substance: ALBUTEROL SULFATE
     Dosage: INHALE 2 PUFFS EVERY 4-6 AS NEEDED AS REQUIRED
     Route: 065
  9. OXYCODONE [Concomitant]
     Active Substance: OXYCODONE
     Dosage: 1 TABLET ORAL EVERY 6 HOURS
     Route: 048
  10. ZYRTEC [Concomitant]
     Active Substance: CETIRIZINE HYDROCHLORIDE
     Dosage: 1 TABLET ORAL ONE TIME DAILY
     Route: 048

REACTIONS (13)
  - Nasal obstruction [Unknown]
  - Pain in extremity [Unknown]
  - Sneezing [Unknown]
  - Nasal congestion [Unknown]
  - Skin reaction [Unknown]
  - Dyspnoea [Unknown]
  - Cough [Unknown]
  - Periodic limb movement disorder [Unknown]
  - Drug dose omission [Unknown]
  - Upper-airway cough syndrome [Unknown]
  - Bronchiectasis [Unknown]
  - Sleep apnoea syndrome [Unknown]
  - Pain [Unknown]
